FAERS Safety Report 7768627-7 (Version None)
Quarter: 2011Q3

REPORT INFORMATION
  Report Type: 
  Country: None (occurrence: None)
  Receive Date: 20110922
  Receipt Date: 20110513
  Transmission Date: 20111222
  Serious: No
  Sender: FDA-Public Use
  Company Number: US-ASTRAZENECA-2010SE58842

PATIENT
  Age: 48 Year
  Sex: Male
  Weight: 70.8 kg

DRUGS (2)
  1. SEROQUEL [Suspect]
     Route: 048
     Dates: start: 20100322
  2. SEROQUEL [Suspect]
     Dosage: TOOK TWO 50 MG TABLET
     Route: 048

REACTIONS (7)
  - SOMNOLENCE [None]
  - WEIGHT INCREASED [None]
  - DRUG DOSE OMISSION [None]
  - INSOMNIA [None]
  - ALOPECIA [None]
  - INCORRECT DOSE ADMINISTERED [None]
  - NERVOUSNESS [None]
